FAERS Safety Report 6156798-8 (Version None)
Quarter: 2009Q2

REPORT INFORMATION
  Report Type: 
  Country: None (occurrence: None)
  Receive Date: 20090416
  Receipt Date: 20090413
  Transmission Date: 20091009
  Serious: Yes (Death, Other)
  Sender: FDA-Public Use
  Company Number: PHHY2008MX14274

PATIENT
  Sex: Female

DRUGS (2)
  1. DIOVAN HCT [Suspect]
     Indication: HYPERTENSION
     Dosage: 1/2 TAB (160/12.5 MG) PER DAY
     Route: 048
     Dates: start: 20050501
  2. DIOVAN HCT [Suspect]
     Dosage: 1 TAB (160/12.5 MG) PER DAY
     Route: 048

REACTIONS (4)
  - DEATH [None]
  - HYPERGLYCAEMIA [None]
  - HYPERTENSION [None]
  - URINARY TRACT INFECTION [None]
